FAERS Safety Report 5764205-X (Version None)
Quarter: 2008Q2

REPORT INFORMATION
  Report Type: 
  Country: None (occurrence: None)
  Receive Date: 20080604
  Receipt Date: 20080520
  Transmission Date: 20081010
  Serious: Yes (Death, Hospitalization)
  Sender: FDA-Public Use
  Company Number: 2008AL005579

PATIENT
  Age: 70 Year
  Sex: Male

DRUGS (9)
  1. DIGOXIN [Suspect]
     Indication: ATRIAL FIBRILLATION
     Dosage: 0.125MG PO
     Route: 048
     Dates: start: 20080312, end: 20080414
  2. ARICEPT [Concomitant]
  3. LASIX [Concomitant]
  4. KLOR-CON [Concomitant]
  5. ENDOMETHACIN [Concomitant]
  6. ACTONEL [Concomitant]
  7. FORTECAL [Concomitant]
  8. DILTIAZEM [Concomitant]
  9. METOPROLOL [Concomitant]

REACTIONS (1)
  - OEDEMA PERIPHERAL [None]
